FAERS Safety Report 23043906 (Version 2)
Quarter: 2023Q4

REPORT INFORMATION
  Report Type: Spontaneous
  Country: CN (occurrence: CN)
  Receive Date: 20231009
  Receipt Date: 20231019
  Transmission Date: 20240109
  Serious: Yes (Other)
  Sender: FDA-Public Use
  Company Number: CN-GE HEALTHCARE-2023CSU008680

PATIENT
  Age: 15 Year
  Sex: Female
  Weight: 50 kg

DRUGS (2)
  1. OMNIPAQUE [Suspect]
     Active Substance: IOHEXOL
     Indication: Computerised tomogram
     Dosage: 60 ML, 1.8 ML/SEC, ONCE
     Route: 042
     Dates: start: 20230927, end: 20230927
  2. OMNIPAQUE [Suspect]
     Active Substance: IOHEXOL
     Indication: Parotitis

REACTIONS (3)
  - Scratch [Not Recovered/Not Resolved]
  - Syncope [Recovered/Resolved with Sequelae]
  - Nausea [Recovered/Resolved with Sequelae]

NARRATIVE: CASE EVENT DATE: 20230927
